FAERS Safety Report 14305310 (Version 1)
Quarter: 2017Q4

REPORT INFORMATION
  Report Type: Spontaneous
  Country: JP (occurrence: JP)
  Receive Date: 20171219
  Receipt Date: 20171219
  Transmission Date: 20180321
  Serious: Yes (Other)
  Sender: FDA-Public Use
  Company Number: JP-OTSUKA-004122

PATIENT
  Age: 22 Year
  Sex: Female

DRUGS (28)
  1. ABILIFY [Suspect]
     Active Substance: ARIPIPRAZOLE
     Dosage: 24 MG, QD
     Route: 048
     Dates: start: 20070403, end: 20071109
  2. ABILIFY [Suspect]
     Active Substance: ARIPIPRAZOLE
     Dosage: 27 MG, QD
     Route: 048
     Dates: start: 20080519, end: 20080622
  3. RISPERDAL [Concomitant]
     Active Substance: RISPERIDONE
     Dosage: 2.5 MG, QD
     Route: 048
     Dates: start: 20070806, end: 20070910
  4. LANDSEN [Concomitant]
     Active Substance: CLONAZEPAM
     Indication: AKATHISIA
     Dosage: 0.5 MG, TID
     Route: 048
     Dates: start: 20071110, end: 20071202
  5. ABILIFY [Suspect]
     Active Substance: ARIPIPRAZOLE
     Dosage: 18 MG, QD
     Route: 048
     Dates: start: 20071110, end: 20071202
  6. ABILIFY [Suspect]
     Active Substance: ARIPIPRAZOLE
     Dosage: 18 MG, QD
     Route: 048
     Dates: start: 20080811, end: 20080907
  7. RISPERDAL [Concomitant]
     Active Substance: RISPERIDONE
     Dosage: 2 MG, QD
     Route: 048
     Dates: start: 20070521, end: 20070603
  8. RISPERDAL [Concomitant]
     Active Substance: RISPERIDONE
     Dosage: 1.5 MG, QD
     Route: 048
     Dates: start: 20070604, end: 20070701
  9. RISPERDAL [Concomitant]
     Active Substance: RISPERIDONE
     Dosage: 1 MG, QD
     Route: 048
     Dates: start: 20070702, end: 20070805
  10. LANDSEN [Concomitant]
     Active Substance: CLONAZEPAM
     Dosage: 0.5 MG, QD
     Route: 048
     Dates: start: 20080728, end: 20080815
  11. AKINETON [Concomitant]
     Active Substance: BIPERIDEN HYDROCHLORIDE
     Indication: AKATHISIA
     Dosage: 2 MG, QD
     Route: 048
     Dates: start: 20070227, end: 20070412
  12. LANDSEN [Concomitant]
     Active Substance: CLONAZEPAM
     Dosage: 1 MG, TID
     Route: 048
     Dates: start: 20071203, end: 20080302
  13. ABILIFY [Suspect]
     Active Substance: ARIPIPRAZOLE
     Dosage: 30 MG, QD
     Route: 048
     Dates: start: 20080128, end: 20080518
  14. ABILIFY [Suspect]
     Active Substance: ARIPIPRAZOLE
     Dosage: 24 MG, QD
     Route: 048
     Dates: start: 20080623, end: 20080713
  15. ABILIFY [Suspect]
     Active Substance: ARIPIPRAZOLE
     Dosage: 15 MG, QD
     Route: 048
     Dates: start: 20080908
  16. ABILIFY [Suspect]
     Active Substance: ARIPIPRAZOLE
     Dosage: 21 MG, QD
     Route: 048
     Dates: start: 20080714, end: 20080810
  17. RISPERDAL [Concomitant]
     Active Substance: RISPERIDONE
     Indication: PRODUCT USED FOR UNKNOWN INDICATION
     Dosage: 4 MG, QD
     Route: 048
     Dates: start: 20070227, end: 20070423
  18. RISPERDAL [Concomitant]
     Active Substance: RISPERIDONE
     Dosage: 2.5 MG, QD
     Route: 048
     Dates: start: 20070507, end: 20070520
  19. LANDSEN [Concomitant]
     Active Substance: CLONAZEPAM
     Dosage: 0.5 MG, TID
     Route: 048
     Dates: start: 20080303, end: 20080706
  20. LANDSEN [Concomitant]
     Active Substance: CLONAZEPAM
     Dosage: 0.5 MG, BID
     Route: 048
     Dates: start: 20080707, end: 20080727
  21. ABILIFY [Suspect]
     Active Substance: ARIPIPRAZOLE
     Dosage: 21 MG, QD
     Route: 048
     Dates: start: 20071203, end: 20080127
  22. AKINETON [Concomitant]
     Active Substance: BIPERIDEN HYDROCHLORIDE
     Dosage: 3 MG, QD
     Route: 048
     Dates: start: 20070413, end: 20080302
  23. AKINETON [Concomitant]
     Active Substance: BIPERIDEN HYDROCHLORIDE
     Dosage: 1 MG, BID
     Route: 048
     Dates: start: 20080303, end: 20080316
  24. ABILIFY [Suspect]
     Active Substance: ARIPIPRAZOLE
     Indication: SCHIZOPHRENIA
     Dosage: 18 MG, DAILY DOSE
     Route: 048
     Dates: start: 20070327, end: 20070402
  25. MIKELAN OPHTHALMIC SOLUTION 1% [Concomitant]
     Indication: AKATHISIA
     Dosage: 5 MG, BID
     Route: 048
     Dates: start: 20080317, end: 20080330
  26. CLONAZEPAM. [Concomitant]
     Active Substance: CLONAZEPAM
     Indication: PRODUCT USED FOR UNKNOWN INDICATION
     Dosage: TABLET
     Route: 065
     Dates: start: 20071110, end: 20080815
  27. RISPERDAL [Concomitant]
     Active Substance: RISPERIDONE
     Dosage: 3 MG, QD
     Route: 048
     Dates: start: 20070424, end: 20070506
  28. MIKELAN TABLETS 5MG [Concomitant]
     Indication: PRODUCT USED FOR UNKNOWN INDICATION
     Dosage: 5 MG, UNK
     Route: 065
     Dates: start: 20080317, end: 20080330

REACTIONS (2)
  - Akathisia [Not Recovered/Not Resolved]
  - Epilepsy [Recovering/Resolving]

NARRATIVE: CASE EVENT DATE: 200704
